FAERS Safety Report 21041818 (Version 5)
Quarter: 2023Q1

REPORT INFORMATION
  Report Type: Report from Study
  Country: DE (occurrence: DE)
  Receive Date: 20220705
  Receipt Date: 20230120
  Transmission Date: 20230417
  Serious: Yes (Hospitalization, Other)
  Sender: FDA-Public Use
  Company Number: DE-TAKEDA-2022TUS042783

PATIENT
  Sex: Male

DRUGS (67)
  1. TEDUGLUTIDE [Suspect]
     Active Substance: TEDUGLUTIDE
     Indication: Short-bowel syndrome
     Dosage: 0.50 MILLIGRAM, QD
     Route: 042
     Dates: start: 20201015, end: 20210615
  2. TEDUGLUTIDE [Suspect]
     Active Substance: TEDUGLUTIDE
     Indication: Short-bowel syndrome
     Dosage: 0.50 MILLIGRAM, QD
     Route: 042
     Dates: start: 20201015, end: 20210615
  3. TEDUGLUTIDE [Suspect]
     Active Substance: TEDUGLUTIDE
     Indication: Short-bowel syndrome
     Dosage: 0.50 MILLIGRAM, QD
     Route: 042
     Dates: start: 20201015, end: 20210615
  4. TEDUGLUTIDE [Suspect]
     Active Substance: TEDUGLUTIDE
     Indication: Short-bowel syndrome
     Dosage: 0.50 MILLIGRAM, QD
     Route: 042
     Dates: start: 20201015, end: 20210615
  5. TEDUGLUTIDE [Suspect]
     Active Substance: TEDUGLUTIDE
     Dosage: 0.55 MILLIGRAM, QD
     Route: 042
     Dates: start: 20210706, end: 20220615
  6. TEDUGLUTIDE [Suspect]
     Active Substance: TEDUGLUTIDE
     Dosage: 0.55 MILLIGRAM, QD
     Route: 042
     Dates: start: 20210706, end: 20220615
  7. TEDUGLUTIDE [Suspect]
     Active Substance: TEDUGLUTIDE
     Dosage: 0.55 MILLIGRAM, QD
     Route: 042
     Dates: start: 20210706, end: 20220615
  8. TEDUGLUTIDE [Suspect]
     Active Substance: TEDUGLUTIDE
     Dosage: 0.55 MILLIGRAM, QD
     Route: 042
     Dates: start: 20210706, end: 20220615
  9. TEDUGLUTIDE [Suspect]
     Active Substance: TEDUGLUTIDE
     Dosage: 0.5 MILLIGRAM, QD
     Route: 042
     Dates: start: 20220714
  10. TEDUGLUTIDE [Suspect]
     Active Substance: TEDUGLUTIDE
     Dosage: 0.5 MILLIGRAM, QD
     Route: 042
     Dates: start: 20220714
  11. TEDUGLUTIDE [Suspect]
     Active Substance: TEDUGLUTIDE
     Dosage: 0.5 MILLIGRAM, QD
     Route: 042
     Dates: start: 20220714
  12. TEDUGLUTIDE [Suspect]
     Active Substance: TEDUGLUTIDE
     Dosage: 0.5 MILLIGRAM, QD
     Route: 042
     Dates: start: 20220714
  13. MELATONIN [Concomitant]
     Active Substance: MELATONIN
     Indication: Insomnia
     Dosage: 5 MILLIGRAM, QD
     Route: 048
     Dates: start: 20210823, end: 202201
  14. MELATONIN [Concomitant]
     Active Substance: MELATONIN
     Indication: Restlessness
     Dosage: 5 MILLIGRAM, QD
     Route: 048
     Dates: start: 20210823
  15. AMLODIPINE BESYLATE [Concomitant]
     Active Substance: AMLODIPINE BESYLATE
     Indication: Hypertension
     Dosage: 2.5 MILLIGRAM, BID
     Route: 048
     Dates: start: 20210823
  16. AMLODIPINE BESYLATE [Concomitant]
     Active Substance: AMLODIPINE BESYLATE
     Dosage: 2.5 MILLIGRAM, BID
     Route: 048
     Dates: start: 20210823, end: 202204
  17. OMEPRAZOLE [Concomitant]
     Active Substance: OMEPRAZOLE
     Indication: Gastric pH increased
     Dosage: 10 MILLIGRAM, BID
     Route: 048
     Dates: start: 20210823
  18. OMEPRAZOLE [Concomitant]
     Active Substance: OMEPRAZOLE
     Dosage: 5 MILLIGRAM, QD
     Route: 048
     Dates: start: 20190807, end: 20200618
  19. OMEPRAZOLE [Concomitant]
     Active Substance: OMEPRAZOLE
     Dosage: 8 MILLIGRAM, QD
     Route: 048
     Dates: start: 20200619, end: 20200831
  20. OMEPRAZOLE [Concomitant]
     Active Substance: OMEPRAZOLE
     Dosage: 10 MILLIGRAM, QD
     Route: 048
     Dates: start: 20200901, end: 20210414
  21. OMEPRAZOLE [Concomitant]
     Active Substance: OMEPRAZOLE
     Dosage: 15 MILLIGRAM, BID
     Route: 048
     Dates: start: 20220519
  22. OMEPRAZOLE [Concomitant]
     Active Substance: OMEPRAZOLE
     Dosage: 10 MILLIGRAM, QD
     Route: 048
     Dates: start: 20210823, end: 20220518
  23. URSODIOL [Concomitant]
     Active Substance: URSODIOL
     Indication: Malabsorption
     Dosage: 150 MILLIGRAM, BID
     Route: 048
     Dates: start: 20210823
  24. URSODIOL [Concomitant]
     Active Substance: URSODIOL
     Dosage: 50 MILLIGRAM, BID
     Route: 048
     Dates: start: 20190807, end: 20191022
  25. URSODIOL [Concomitant]
     Active Substance: URSODIOL
     Dosage: 60 MILLIGRAM, BID
     Route: 048
     Dates: start: 20191023, end: 20200618
  26. URSODIOL [Concomitant]
     Active Substance: URSODIOL
     Dosage: 90 MILLIGRAM, BID
     Route: 048
     Dates: start: 20200619, end: 20200831
  27. URSODIOL [Concomitant]
     Active Substance: URSODIOL
     Dosage: 100 MILLIGRAM, BID
     Route: 048
     Dates: start: 20200901, end: 20210822
  28. KONAKION [Concomitant]
     Active Substance: PHYTONADIONE
     Indication: Vitamin K deficiency
     Dosage: 2 MILLIGRAM, QD
     Route: 042
     Dates: start: 20191007, end: 20191022
  29. KONAKION [Concomitant]
     Active Substance: PHYTONADIONE
     Dosage: 3 MILLIGRAM, QD
     Route: 042
     Dates: start: 20191023, end: 20210822
  30. KONAKION [Concomitant]
     Active Substance: PHYTONADIONE
     Dosage: 5 MILLIGRAM, QD
     Route: 042
     Dates: start: 20191023, end: 20220308
  31. KONAKION [Concomitant]
     Active Substance: PHYTONADIONE
     Dosage: 5 MILLIGRAM, TID
     Route: 042
     Dates: start: 20220309
  32. ORGARAN [Concomitant]
     Active Substance: DANAPAROID SODIUM
     Indication: Heparin-induced thrombocytopenia
     Dosage: 100 INTERNATIONAL UNIT, BID
     Route: 058
     Dates: start: 20190705, end: 20191022
  33. ORGARAN [Concomitant]
     Active Substance: DANAPAROID SODIUM
     Dosage: 130 INTERNATIONAL UNIT, BID
     Route: 058
     Dates: start: 20191023, end: 20200618
  34. ORGARAN [Concomitant]
     Active Substance: DANAPAROID SODIUM
     Dosage: 140 INTERNATIONAL UNIT, BID
     Route: 058
     Dates: start: 20200619, end: 20200704
  35. ORGARAN [Concomitant]
     Active Substance: DANAPAROID SODIUM
     Dosage: 160 INTERNATIONAL UNIT, BID
     Route: 058
     Dates: start: 20200705, end: 20200831
  36. ORGARAN [Concomitant]
     Active Substance: DANAPAROID SODIUM
     Dosage: 180 INTERNATIONAL UNIT, BID
     Route: 058
     Dates: start: 20200901, end: 20201019
  37. ORGARAN [Concomitant]
     Active Substance: DANAPAROID SODIUM
     Dosage: 200 INTERNATIONAL UNIT, BID
     Route: 058
     Dates: start: 20201020, end: 20210823
  38. VITAMIN D [Concomitant]
     Active Substance: VITAMIN D NOS
     Indication: Vitamin D deficiency
     Dosage: 1000 INTERNATIONAL UNIT, QD
     Route: 048
     Dates: start: 20190807, end: 20201019
  39. VITAMIN D [Concomitant]
     Active Substance: VITAMIN D NOS
     Dosage: 2000 INTERNATIONAL UNIT, QD
     Route: 048
     Dates: start: 20201020
  40. VANCOMYCIN [Concomitant]
     Active Substance: VANCOMYCIN
     Indication: Acinetobacter sepsis
     Dosage: 120 MILLIGRAM, QID
     Route: 042
     Dates: start: 20201002, end: 20201002
  41. VANCOMYCIN [Concomitant]
     Active Substance: VANCOMYCIN
     Indication: Device related infection
     Dosage: 120 MILLIGRAM, TID
     Route: 042
     Dates: start: 20201003, end: 20201012
  42. VANCOMYCIN [Concomitant]
     Active Substance: VANCOMYCIN
     Dosage: 120 MILLIGRAM, QD
     Route: 042
     Dates: start: 20201013, end: 20201013
  43. VANCOMYCIN [Concomitant]
     Active Substance: VANCOMYCIN
     Dosage: 150 MILLIGRAM, BID
     Route: 042
     Dates: start: 20210515, end: 20210704
  44. VANCOMYCIN [Concomitant]
     Active Substance: VANCOMYCIN
     Dosage: 300 MILLIGRAM, TID
     Route: 042
     Dates: start: 20210930
  45. VANCOMYCIN [Concomitant]
     Active Substance: VANCOMYCIN
     Dosage: 300 MILLIGRAM, QD
     Route: 042
     Dates: start: 202109, end: 20210930
  46. MEROPENEM [Concomitant]
     Active Substance: MEROPENEM
     Indication: Acinetobacter sepsis
     Dosage: 200 MILLIGRAM, TID
     Route: 042
     Dates: start: 20201002, end: 20201012
  47. MEROPENEM [Concomitant]
     Active Substance: MEROPENEM
     Dosage: 200 MILLIGRAM, QID
     Route: 042
     Dates: start: 20201013, end: 20201013
  48. MEROPENEM [Concomitant]
     Active Substance: MEROPENEM
     Dosage: 200 MILLIGRAM, QD
     Route: 042
     Dates: start: 20201014, end: 20201014
  49. MEROPENEM [Concomitant]
     Active Substance: MEROPENEM
     Dosage: 220 MILLIGRAM, TID
     Route: 042
     Dates: start: 20210515, end: 20210610
  50. MEROPENEM [Concomitant]
     Active Substance: MEROPENEM
     Dosage: 220 MILLIGRAM, TID
     Route: 042
     Dates: start: 20210624, end: 20210705
  51. MEROPENEM [Concomitant]
     Active Substance: MEROPENEM
     Dosage: 280 MILLIGRAM, TID
     Route: 042
     Dates: start: 202109, end: 20210930
  52. METRONIDAZOLE [Concomitant]
     Active Substance: METRONIDAZOLE
     Indication: Sepsis
     Dosage: 100 MILLIGRAM, TID
     Route: 042
     Dates: start: 20210515, end: 20210610
  53. METRONIDAZOLE [Concomitant]
     Active Substance: METRONIDAZOLE
     Dosage: 100 MILLIGRAM, TID
     Route: 042
     Dates: start: 20210515, end: 20210518
  54. LINEZOLID [Concomitant]
     Active Substance: LINEZOLID
     Indication: Sepsis
     Dosage: 100 MILLIGRAM, TID
     Route: 042
     Dates: start: 20210516, end: 20210520
  55. CEFTAZIDIME [Concomitant]
     Active Substance: CEFTAZIDIME
     Indication: Sepsis
     Dosage: 20 MILLIGRAM
     Route: 042
     Dates: start: 20210521, end: 20210604
  56. PIPERACILLIN AND TAZOBACTAM [Concomitant]
     Active Substance: PIPERACILLIN SODIUM\TAZOBACTAM SODIUM
     Indication: Sepsis
     Dosage: 730 MILLIGRAM, TID
     Route: 042
     Dates: start: 20210610, end: 20210624
  57. FLUCONAZOLE [Concomitant]
     Active Substance: FLUCONAZOLE
     Indication: Sepsis
     Dosage: 60 MILLIGRAM, QD
     Route: 042
     Dates: start: 20210616, end: 20210623
  58. BACLOFEN [Concomitant]
     Active Substance: BACLOFEN
     Indication: Leukoencephalopathy
     Dosage: 8 MILLIGRAM, TID
     Route: 048
     Dates: start: 202107, end: 20210926
  59. BACLOFEN [Concomitant]
     Active Substance: BACLOFEN
     Dosage: 8 MILLIGRAM, TID
     Route: 048
     Dates: start: 20220309, end: 20220518
  60. BACLOFEN [Concomitant]
     Active Substance: BACLOFEN
     Dosage: 7.5 MILLIGRAM, BID
     Route: 048
     Dates: start: 20220519
  61. BACLOFEN [Concomitant]
     Active Substance: BACLOFEN
     Dosage: 10 MILLIGRAM, QD
     Route: 048
     Dates: start: 20220519
  62. BACLOFEN [Concomitant]
     Active Substance: BACLOFEN
     Dosage: 7.5 MILLIGRAM, TID
     Route: 048
     Dates: start: 20210927, end: 20220308
  63. TROSPIUM CHLORIDE [Concomitant]
     Active Substance: TROSPIUM CHLORIDE
     Indication: Anticholinergic syndrome
     Dosage: 0.75 MILLIGRAM, QD
     Route: 054
     Dates: start: 2021
  64. BETAMETHASONE [Concomitant]
     Active Substance: BETAMETHASONE
     Indication: Phimosis
     Dosage: 0.1 PERCENT, BID
     Route: 061
     Dates: start: 20220512
  65. METAMIZOLE SODIUM [Concomitant]
     Active Substance: METAMIZOLE SODIUM
     Indication: Pain
     Dosage: 240 MILLIGRAM
     Route: 048
     Dates: start: 202205
  66. AMPICILLIN [Concomitant]
     Active Substance: AMPICILLIN
     Indication: Urinary tract infection
     Dosage: 500 MILLIGRAM, TID
     Route: 042
     Dates: start: 202204, end: 202204
  67. AMPICILLIN [Concomitant]
     Active Substance: AMPICILLIN
     Indication: Inflammation

REACTIONS (3)
  - Gastric varices [Recovered/Resolved]
  - Varices oesophageal [Recovered/Resolved]
  - Haematemesis [Recovered/Resolved]

NARRATIVE: CASE EVENT DATE: 20210601
